FAERS Safety Report 15327814 (Version 1)
Quarter: 2018Q3

REPORT INFORMATION
  Report Type: Spontaneous
  Country: US (occurrence: US)
  Receive Date: 20180828
  Receipt Date: 20180828
  Transmission Date: 20181010
  Serious: No
  Sender: FDA-Public Use
  Company Number: US-ROCHE-2121453

PATIENT
  Sex: Female
  Weight: 60.84 kg

DRUGS (1)
  1. ALECENSA [Suspect]
     Active Substance: ALECTINIB HYDROCHLORIDE
     Indication: LUNG NEOPLASM MALIGNANT
     Dosage: TAKE 3 CAPSULES BY MOUTH
     Route: 048
     Dates: start: 20180503

REACTIONS (2)
  - Chills [Unknown]
  - Fatigue [Unknown]
